FAERS Safety Report 6568478-5 (Version None)
Quarter: 2010Q1

REPORT INFORMATION
  Report Type: 
  Country: None (occurrence: None)
  Receive Date: 20100203
  Receipt Date: 20100127
  Transmission Date: 20100710
  Serious: Yes (Death)
  Sender: FDA-Public Use
  Company Number: B0608340A

PATIENT
  Sex: Female

DRUGS (3)
  1. TYKERB [Suspect]
     Indication: BREAST CANCER METASTATIC
     Dosage: 1250MG TWICE PER DAY
     Route: 048
     Dates: start: 20091009, end: 20100118
  2. XELODA [Concomitant]
     Indication: DRUG USE FOR UNKNOWN INDICATION
     Dosage: 1000MGM2 TWICE PER DAY
     Route: 048
     Dates: start: 20091009, end: 20100115
  3. LOPEMIN [Concomitant]
     Route: 048

REACTIONS (3)
  - DEATH [None]
  - DERMATITIS ACNEIFORM [None]
  - MYOCARDIAL INFARCTION [None]
